FAERS Safety Report 14870738 (Version 1)
Quarter: 2018Q2

REPORT INFORMATION
  Report Type: Report from Study
  Country: ES (occurrence: ES)
  Receive Date: 20180509
  Receipt Date: 20180509
  Transmission Date: 20180711
  Serious: Yes (Hospitalization, Disabling, Other)
  Sender: FDA-Public Use
  Company Number: ES-UCBSA-2018019839

PATIENT
  Sex: Female

DRUGS (2)
  1. BRIVARACETAM [Suspect]
     Active Substance: BRIVARACETAM
     Indication: EPILEPSY
     Dosage: UNK
  2. BRIVARACETAM [Suspect]
     Active Substance: BRIVARACETAM
     Dosage: HIGH DOSE

REACTIONS (13)
  - Disability [Unknown]
  - Aggression [Unknown]
  - Unevaluable event [Unknown]
  - Adverse event [Unknown]
  - Somnolence [Unknown]
  - Cognitive disorder [Unknown]
  - Pain [Unknown]
  - Malaise [Unknown]
  - Seizure [Unknown]
  - Dizziness [Unknown]
  - Fatigue [Unknown]
  - Anxiety [Unknown]
  - Mental fatigue [Unknown]
